FAERS Safety Report 6983361-9 (Version None)
Quarter: 2010Q3

REPORT INFORMATION
  Report Type: 
  Country: None (occurrence: None)
  Receive Date: 20100914
  Receipt Date: 20100901
  Transmission Date: 20110219
  Serious: Yes (Hospitalization)
  Sender: FDA-Public Use
  Company Number: PHHY2010CL58262

PATIENT
  Age: 63 Year
  Sex: Female

DRUGS (2)
  1. TAREG D [Suspect]
     Dosage: ONE TABLET (320/25 MG) PER DAY
  2. ANTIINFLAMMATORY [Concomitant]

REACTIONS (2)
  - HEAD INJURY [None]
  - LOSS OF CONSCIOUSNESS [None]
